FAERS Safety Report 18284379 (Version 2)
Quarter: 2020Q4

REPORT INFORMATION
  Report Type: Report from Study
  Country: None (occurrence: US)
  Receive Date: 20200918
  Receipt Date: 20201001
  Transmission Date: 20210113
  Serious: Yes (Hospitalization)
  Sender: FDA-Public Use
  Company Number: US-ABBVIE-20P-163-3565714-00

PATIENT
  Age: 74 Year
  Sex: Female
  Weight: 72 kg

DRUGS (38)
  1. DECITABINE. [Suspect]
     Active Substance: DECITABINE
     Indication: ACUTE MYELOID LEUKAEMIA
     Dosage: DAY 1  5 OF EACH 28 DAY CYCLE
     Route: 042
     Dates: start: 20200713
  2. FLUDROCORTISONE [Concomitant]
     Active Substance: FLUDROCORTISONE
     Indication: ADRENAL INSUFFICIENCY
     Dosage: FREQUENCY: MWF
     Route: 048
     Dates: start: 20200410
  3. LEVOTHROXINE [Concomitant]
     Active Substance: LEVOTHYROXINE
     Indication: HYPOTHYROIDISM
     Route: 048
     Dates: start: 20100812
  4. BIOTENE MOUTHWASH [Concomitant]
     Active Substance: CETYLPYRIDINIUM CHLORIDE
     Indication: DENTAL DISORDER PROPHYLAXIS
     Route: 048
     Dates: start: 20200718
  5. OXYCODONE [Concomitant]
     Active Substance: OXYCODONE
     Indication: BACK PAIN
     Dosage: AS NEEDED
     Route: 048
     Dates: start: 20200820
  6. HYDROCHLOROTHIAZIDE. [Concomitant]
     Active Substance: HYDROCHLOROTHIAZIDE
     Indication: HYPERTENSION
  7. FLUTICASONE. [Concomitant]
     Active Substance: FLUTICASONE
     Indication: UPPER-AIRWAY COUGH SYNDROME
     Route: 045
     Dates: start: 20200828
  8. METFORMIN [Concomitant]
     Active Substance: METFORMIN HYDROCHLORIDE
     Indication: TYPE 2 DIABETES MELLITUS
     Route: 048
     Dates: start: 20200811, end: 20200817
  9. INSULIN LISPRO [Concomitant]
     Active Substance: INSULIN LISPRO
     Dosage: 0-6, SLIDING SCALE NIGHTLY
     Route: 058
     Dates: start: 20200817, end: 20200909
  10. HYDROCHLOROTHIAZIDE. [Concomitant]
     Active Substance: HYDROCHLOROTHIAZIDE
     Indication: OEDEMA PERIPHERAL
     Route: 048
     Dates: start: 20200825, end: 20200906
  11. ALLOPURINOL. [Concomitant]
     Active Substance: ALLOPURINOL
     Indication: PROPHYLAXIS
     Route: 048
     Dates: start: 20200709, end: 20200720
  12. BISACODYL. [Concomitant]
     Active Substance: BISACODYL
     Indication: CONSTIPATION
     Dosage: AS NEEDED
     Route: 048
     Dates: start: 20200829
  13. METFORMIN [Concomitant]
     Active Substance: METFORMIN HYDROCHLORIDE
     Dosage: WITH MEALS
     Route: 048
     Dates: start: 20200828, end: 20200901
  14. VENETOCLAX. [Suspect]
     Active Substance: VENETOCLAX
     Route: 048
     Dates: start: 20200715, end: 20200803
  15. ZOFRAN [Concomitant]
     Active Substance: ONDANSETRON HYDROCHLORIDE
     Route: 048
     Dates: start: 20200824
  16. SODIUM CHLORIDE NASAL SPRAY [Concomitant]
     Indication: EPISTAXIS
     Dosage: AS NEEDED
     Route: 045
     Dates: start: 20200719
  17. TRAMADOL. [Concomitant]
     Active Substance: TRAMADOL
     Indication: BACK PAIN
     Dosage: AS NEEDED
     Route: 048
     Dates: start: 20200817
  18. LISINOPRIL. [Concomitant]
     Active Substance: LISINOPRIL
     Indication: HYPERTENSION
     Route: 048
     Dates: start: 20200830
  19. GRANISETRON [Concomitant]
     Active Substance: GRANISETRON
     Indication: CHEMOTHERAPY
     Route: 042
     Dates: start: 20200713
  20. FLEXERIL [Concomitant]
     Active Substance: CYCLOBENZAPRINE HYDROCHLORIDE
     Indication: BACK PAIN
     Dosage: AS NEEDED
     Route: 048
     Dates: start: 20200809
  21. TYLENOL [Concomitant]
     Active Substance: ACETAMINOPHEN
     Indication: BACK PAIN
     Dosage: AS NEEDED
     Route: 048
     Dates: start: 20200814
  22. HYDROCORTISONE. [Concomitant]
     Active Substance: HYDROCORTISONE
     Indication: ADRENAL INSUFFICIENCY
     Route: 048
     Dates: start: 20200823
  23. VENETOCLAX. [Suspect]
     Active Substance: VENETOCLAX
     Indication: ACUTE MYELOID LEUKAEMIA
     Route: 048
     Dates: start: 20200713, end: 20200713
  24. VENETOCLAX. [Suspect]
     Active Substance: VENETOCLAX
     Route: 048
     Dates: start: 20200714, end: 20200714
  25. GRANISETRON [Concomitant]
     Active Substance: GRANISETRON
     Indication: PREMEDICATION
  26. HYDRALAZINE [Concomitant]
     Active Substance: HYDRALAZINE HYDROCHLORIDE
     Indication: HYPERTENSION
     Dosage: AS NEEDED
     Route: 042
     Dates: start: 20200817
  27. POLYETHYLENE GLYCOL [Concomitant]
     Active Substance: POLYETHYLENE GLYCOLS
     Indication: CONSTIPATION
     Dosage: AS NEEDED
     Route: 048
     Dates: start: 20200826
  28. SENNOSIDES. [Concomitant]
     Active Substance: SENNOSIDES
     Indication: CONSTIPATION
     Route: 048
     Dates: start: 20200830
  29. VENETOCLAX. [Suspect]
     Active Substance: VENETOCLAX
     Route: 048
     Dates: start: 20200804
  30. VITAMIN D3 [Concomitant]
     Active Substance: CHOLECALCIFEROL
     Indication: SUPPLEMENTATION THERAPY
     Route: 048
     Dates: start: 201906
  31. COMPAZINE [Concomitant]
     Active Substance: PROCHLORPERAZINE MALEATE
     Indication: NAUSEA
     Dosage: AS NEEDED
     Route: 048
     Dates: start: 20200716
  32. HYDROCORTISONE. [Concomitant]
     Active Substance: HYDROCORTISONE
     Dosage: WITH BREAKFAST
     Route: 048
     Dates: start: 20200824
  33. ZOFRAN [Concomitant]
     Active Substance: ONDANSETRON HYDROCHLORIDE
     Indication: NAUSEA
     Dosage: AS NEEDED
     Route: 048
     Dates: start: 20200716
  34. COMPAZINE [Concomitant]
     Active Substance: PROCHLORPERAZINE MALEATE
     Dosage: AS NEEDED
     Route: 048
     Dates: start: 20200817
  35. HYDRALAZINE [Concomitant]
     Active Substance: HYDRALAZINE HYDROCHLORIDE
     Dosage: PRN FOR SBP}150 OR DBP}100
     Route: 048
     Dates: start: 20200822
  36. PANTOPRAZOLE [Concomitant]
     Active Substance: PANTOPRAZOLE
     Indication: NAUSEA
     Route: 048
     Dates: start: 20200830
  37. METFORMIN [Concomitant]
     Active Substance: METFORMIN HYDROCHLORIDE
     Dosage: WITH MEALS
     Route: 048
     Dates: start: 20200902, end: 20200902
  38. INSULIN LISPRO [Concomitant]
     Active Substance: INSULIN LISPRO
     Indication: TYPE 2 DIABETES MELLITUS
     Dosage: SLIDING SCALE WITH MEALS
     Route: 058
     Dates: start: 20200817, end: 20200909

REACTIONS (1)
  - Proctalgia [Recovered/Resolved]

NARRATIVE: CASE EVENT DATE: 20200911
